FAERS Safety Report 24180742 (Version 1)
Quarter: 2024Q3

REPORT INFORMATION
  Report Type: Spontaneous
  Country: US (occurrence: US)
  Receive Date: 20240806
  Receipt Date: 20240806
  Transmission Date: 20241017
  Serious: No
  Sender: SANDOZ
  Company Number: US-SANDOZ-SDZ2024US070694

PATIENT
  Age: 55 Year
  Sex: Female

DRUGS (2)
  1. RECLAST [Suspect]
     Active Substance: ZOLEDRONIC ACID
     Indication: Product used for unknown indication
     Dosage: UNK
     Route: 065
     Dates: start: 20240801
  2. SYNTHROID [Concomitant]
     Active Substance: LEVOTHYROXINE SODIUM
     Indication: Product used for unknown indication
     Dosage: 100 MG
     Route: 065

REACTIONS (13)
  - Influenza like illness [Unknown]
  - Chills [Unknown]
  - Pyrexia [Unknown]
  - Headache [Unknown]
  - Dizziness [Unknown]
  - Nausea [Unknown]
  - Chest pain [Recovered/Resolved]
  - Pain [Unknown]
  - Abdominal pain upper [Unknown]
  - Arthritis [Unknown]
  - Arthralgia [Unknown]
  - Insomnia [Unknown]
  - Impaired quality of life [Unknown]

NARRATIVE: CASE EVENT DATE: 20240801
